FAERS Safety Report 7907853-0 (Version None)
Quarter: 2011Q4

REPORT INFORMATION
  Report Type: 
  Country: None (occurrence: None)
  Receive Date: 20111110
  Receipt Date: 20111108
  Transmission Date: 20120403
  Serious: Yes (Disabling, Other)
  Sender: FDA-Public Use
  Company Number: US-PFIZER INC-2011203171

PATIENT
  Sex: Female

DRUGS (6)
  1. CHANTIX [Suspect]
     Indication: SMOKING CESSATION THERAPY
     Dosage: 0.5MG AND 1MG, UNK
     Dates: start: 20080601, end: 20080801
  2. VALIUM [Concomitant]
     Indication: DEPRESSION
  3. DIAZEPAM [Concomitant]
     Indication: ANXIETY
     Dosage: UNK
     Dates: start: 20070101, end: 20110101
  4. VALIUM [Concomitant]
     Indication: ANXIETY
     Dosage: UNK
     Dates: start: 20050101, end: 20110201
  5. PROTONIX [Concomitant]
     Indication: GASTROOESOPHAGEAL REFLUX DISEASE
     Dosage: UNK
     Dates: start: 20040101, end: 20110401
  6. HYDROCODONE [Concomitant]
     Indication: PAIN
     Dosage: UNK
     Dates: start: 20050101

REACTIONS (7)
  - SUICIDAL IDEATION [None]
  - MENTAL DISORDER [None]
  - AGGRESSION [None]
  - ANXIETY [None]
  - DEPRESSION [None]
  - DISTURBANCE IN ATTENTION [None]
  - PERSONALITY DISORDER [None]
